FAERS Safety Report 23994967 (Version 1)
Quarter: 2024Q2

REPORT INFORMATION
  Report Type: Spontaneous
  Country: US (occurrence: US)
  Receive Date: 20240620
  Receipt Date: 20240620
  Transmission Date: 20240716
  Serious: No
  Sender: FDA-Public Use
  Company Number: US-Merz Pharmaceuticals GmbH-24-01694

PATIENT
  Age: 2 Year
  Sex: Male
  Weight: 9.4 kg

DRUGS (1)
  1. XEOMIN [Suspect]
     Active Substance: INCOBOTULINUMTOXINA
     Indication: Salivary gland disorder
     Route: 030

REACTIONS (2)
  - Product use issue [Unknown]
  - Overdose [Unknown]
